FAERS Safety Report 6143071-7 (Version None)
Quarter: 2009Q2

REPORT INFORMATION
  Report Type: 
  Country: None (occurrence: None)
  Receive Date: 20090403
  Receipt Date: 20090327
  Transmission Date: 20091009
  Serious: Yes (Hospitalization, Other)
  Sender: FDA-Public Use
  Company Number: GB-SANOFI-SYNTHELABO-F01200900114

PATIENT
  Sex: Male

DRUGS (5)
  1. ELIGARD [Suspect]
     Indication: PROSTATE CANCER
     Dosage: 22.5 MG
     Route: 058
     Dates: start: 20070319, end: 20081030
  2. MEGESTROL ACETATE [Concomitant]
     Dosage: UNK
     Dates: start: 20070905
  3. SALBUTAMOL SULFATE [Concomitant]
     Dosage: UNK
  4. BECLOMETHASONE DIPROPIONATE [Concomitant]
     Dosage: UNK
  5. IBUPROFEN SODIUM [Concomitant]
     Dosage: UNK
     Dates: start: 20070301

REACTIONS (4)
  - BLADDER CANCER [None]
  - CALCULUS BLADDER [None]
  - HAEMATURIA [None]
  - PAIN [None]
